FAERS Safety Report 7959933-1 (Version None)
Quarter: 2011Q4

REPORT INFORMATION
  Report Type: 
  Country: None (occurrence: None)
  Receive Date: 20111206
  Receipt Date: 20111123
  Transmission Date: 20120403
  Serious: Yes (Death)
  Sender: FDA-Public Use
  Company Number: RS-MERCK-1111USA03468

PATIENT
  Age: 30 Year
  Sex: Male

DRUGS (4)
  1. ISENTRESS [Suspect]
     Indication: HIV INFECTION
     Route: 048
     Dates: start: 20070101, end: 20111121
  2. DARUNAVIR [Concomitant]
     Route: 065
  3. LAMIVUDINE [Concomitant]
     Route: 065
  4. RITONAVIR [Concomitant]
     Route: 065

REACTIONS (2)
  - DEATH [None]
  - RETROPERITONEAL HAEMATOMA [None]
